FAERS Safety Report 7511430-3 (Version None)
Quarter: 2011Q2

REPORT INFORMATION
  Report Type: 
  Country: None (occurrence: None)
  Receive Date: 20110531
  Receipt Date: 20110521
  Transmission Date: 20111010
  Serious: Yes (Hospitalization)
  Sender: FDA-Public Use
  Company Number: CA-US-EMD SERONO, INC.-7060028

PATIENT
  Sex: Female

DRUGS (4)
  1. CHANTIX [Concomitant]
  2. REBIF [Suspect]
     Indication: MULTIPLE SCLEROSIS
     Dates: start: 20090408
  3. PREDNISONE [Concomitant]
  4. TRIPHASIL-21 [Concomitant]

REACTIONS (1)
  - HEPATIC FAILURE [None]
